FAERS Safety Report 6998219-9 (Version None)
Quarter: 2010Q3

REPORT INFORMATION
  Report Type: 
  Country: None (occurrence: None)
  Receive Date: 20100920
  Receipt Date: 20100311
  Transmission Date: 20110219
  Serious: No
  Sender: FDA-Public Use
  Company Number: US-ASTRAZENECA-2006UW23156

PATIENT
  Age: 345 Month
  Sex: Female
  Weight: 90.7 kg

DRUGS (14)
  1. SEROQUEL [Suspect]
     Indication: DEPRESSION
     Route: 048
     Dates: start: 19990101, end: 20080101
  2. SEROQUEL [Suspect]
     Indication: BIPOLAR DISORDER
     Route: 048
     Dates: start: 19990101, end: 20080101
  3. SEROQUEL [Suspect]
     Indication: ANXIETY
     Route: 048
     Dates: start: 19990101, end: 20080101
  4. SEROQUEL [Suspect]
     Indication: BIPOLAR I DISORDER
     Route: 048
     Dates: start: 19990101, end: 20080101
  5. SEROQUEL [Suspect]
     Route: 048
     Dates: start: 20010131
  6. SEROQUEL [Suspect]
     Route: 048
     Dates: start: 20010131
  7. SEROQUEL [Suspect]
     Route: 048
     Dates: start: 20010131
  8. SEROQUEL [Suspect]
     Route: 048
     Dates: start: 20010131
  9. SEROQUEL [Suspect]
     Route: 048
     Dates: start: 20030101, end: 20040101
  10. SEROQUEL [Suspect]
     Route: 048
     Dates: start: 20030101, end: 20040101
  11. SEROQUEL [Suspect]
     Route: 048
     Dates: start: 20030101, end: 20040101
  12. SEROQUEL [Suspect]
     Route: 048
     Dates: start: 20030101, end: 20040101
  13. CELEXA [Concomitant]
     Dates: start: 20010131
  14. ZYPREXA [Concomitant]
     Dosage: STRENGTH - 2.5, 5 MG
     Dates: start: 20010721

REACTIONS (7)
  - BLOOD CHOLESTEROL INCREASED [None]
  - BLOOD TRIGLYCERIDES INCREASED [None]
  - DIABETES MELLITUS [None]
  - HYPERLIPIDAEMIA [None]
  - OBESITY [None]
  - TYPE 1 DIABETES MELLITUS [None]
  - TYPE 2 DIABETES MELLITUS [None]
